FAERS Safety Report 14853928 (Version 1)
Quarter: 2018Q2

REPORT INFORMATION
  Report Type: Spontaneous
  Country: US (occurrence: US)
  Receive Date: 20180507
  Receipt Date: 20180507
  Transmission Date: 20180711
  Serious: No
  Sender: FDA-Public Use
  Company Number: US-PFIZER INC-2018182476

PATIENT
  Sex: Male

DRUGS (1)
  1. ADVIL PM [Suspect]
     Active Substance: DIPHENHYDRAMINE CITRATE\IBUPROFEN
     Dosage: 3 UNK, UNK (TOOK 3 ONCE)
     Dates: start: 2018, end: 201804

REACTIONS (1)
  - Drug ineffective [Not Recovered/Not Resolved]
